FAERS Safety Report 9673427 (Version 1)
Quarter: 2013Q4

REPORT INFORMATION
  Report Type: Spontaneous
  Country: US (occurrence: US)
  Receive Date: 20131106
  Receipt Date: 20131106
  Transmission Date: 20140711
  Serious: No
  Sender: FDA-Public Use
  Company Number: US-AMGEN-USASP2013075521

PATIENT
  Age: 78 Year
  Sex: Female

DRUGS (3)
  1. ENBREL [Suspect]
     Indication: RHEUMATOID ARTHRITIS
     Dosage: 50 MG, QWK
     Route: 065
     Dates: start: 201306
  2. METHOTREXATE [Concomitant]
     Dosage: 2.5 MG TAB X 8 ONCE A WEEK
  3. PREDNISONE [Concomitant]
     Dosage: UNK

REACTIONS (5)
  - Bunion [Unknown]
  - Foot deformity [Unknown]
  - Rash erythematous [Recovered/Resolved]
  - Pain in extremity [Recovered/Resolved]
  - Injection site pain [Recovered/Resolved]
